FAERS Safety Report 17363331 (Version 1)
Quarter: 2020Q1

REPORT INFORMATION
  Report Type: Report from Study
  Country: CR (occurrence: CR)
  Receive Date: 20200203
  Receipt Date: 20200203
  Transmission Date: 20200409
  Serious: Yes (Other)
  Sender: FDA-Public Use
  Company Number: NVSC2020CR022699

PATIENT
  Age: 62 Year
  Sex: Female

DRUGS (1)
  1. SANDOSTATIN LAR DEPOT [Suspect]
     Active Substance: OCTREOTIDE ACETATE
     Indication: PRODUCT USED FOR UNKNOWN INDICATION
     Dosage: 20 MG, QMO
     Route: 065
     Dates: start: 201611

REACTIONS (7)
  - Malaise [Unknown]
  - Anxiety [Unknown]
  - Pharyngitis [Unknown]
  - Throat irritation [Unknown]
  - Chest discomfort [Unknown]
  - Aphonia [Unknown]
  - Weight decreased [Unknown]
